FAERS Safety Report 6832460-0 (Version None)
Quarter: 2010Q3

REPORT INFORMATION
  Report Type: 
  Country: None (occurrence: None)
  Receive Date: 20100712
  Receipt Date: 20070311
  Transmission Date: 20110219
  Serious: No
  Sender: FDA-Public Use
  Company Number: US-PFIZER INC-2007020539

PATIENT
  Sex: Female

DRUGS (5)
  1. CHANTIX [Suspect]
     Indication: SMOKING CESSATION THERAPY
     Dates: start: 20070101
  2. NORVASC [Concomitant]
     Indication: HYPERTENSION
  3. NEURONTIN [Concomitant]
     Indication: PAIN
  4. CLONAZEPAM [Concomitant]
     Indication: ANXIETY
  5. NICOTINE [Concomitant]

REACTIONS (4)
  - APHONIA [None]
  - DIZZINESS [None]
  - OROPHARYNGEAL PAIN [None]
  - SOMNOLENCE [None]
